FAERS Safety Report 5197593-6 (Version None)
Quarter: 2006Q4

REPORT INFORMATION
  Report Type: 
  Country: None (occurrence: None)
  Receive Date: 20061228
  Receipt Date: 20061208
  Transmission Date: 20070319
  Serious: Yes (Other)
  Sender: FDA-Public Use
  Company Number: 2006SP008126

PATIENT
  Age: 44 Year
  Sex: Male
  Weight: 53 kg

DRUGS (2)
  1. PEGINTERFERON ALFA-2B (S-P) (PEGINTERFERON ALFA-2B) [Suspect]
     Indication: HEPATITIS C
     Dosage: 80 MCG; QW
     Dates: start: 20040201, end: 20040601
  2. RIBAVIRIN [Suspect]
     Indication: HEPATITIS C
     Dosage: 1 GM; QD;
     Dates: start: 20040201, end: 20040601

REACTIONS (11)
  - BLOOD ALKALINE PHOSPHATASE INCREASED [None]
  - DRUG INTOLERANCE [None]
  - FATIGUE [None]
  - GLOMERULOSCLEROSIS [None]
  - HAEMATOCRIT DECREASED [None]
  - HAEMATURIA [None]
  - HAEMOGLOBIN DECREASED [None]
  - JOINT SWELLING [None]
  - NEPHROTIC SYNDROME [None]
  - PYREXIA [None]
  - THROMBOCYTOPENIA [None]
